FAERS Safety Report 13913010 (Version 1)
Quarter: 2017Q3

REPORT INFORMATION
  Report Type: Spontaneous
  Country: SG (occurrence: SG)
  Receive Date: 20170828
  Receipt Date: 20170828
  Transmission Date: 20171127
  Serious: Yes (Life-Threatening, Other)
  Sender: FDA-Public Use
  Company Number: SG-BAUSCH-BL-2017-025376

PATIENT
  Age: 27 Year
  Sex: Male

DRUGS (2)
  1. THEOPHYLLINE [Suspect]
     Active Substance: THEOPHYLLINE ANHYDROUS
     Indication: STATUS ASTHMATICUS
     Route: 065
  2. KETAMINE [Suspect]
     Active Substance: KETAMINE
     Indication: STATUS ASTHMATICUS
     Route: 065

REACTIONS (1)
  - Drug ineffective [Unknown]
